FAERS Safety Report 5541990-3 (Version None)
Quarter: 2007Q4

REPORT INFORMATION
  Report Type: 
  Country: None (occurrence: None)
  Receive Date: 20071210
  Receipt Date: 20071129
  Transmission Date: 20080405
  Serious: Yes (Hospitalization)
  Sender: FDA-Public Use
  Company Number: JP-MERCK-0712USA01261

PATIENT
  Age: 64 Year
  Sex: Male

DRUGS (7)
  1. PEPCID RPD [Suspect]
     Indication: GASTRITIS
     Route: 048
     Dates: start: 20071105, end: 20071114
  2. NORVASC [Concomitant]
     Route: 065
  3. DIOVAN [Concomitant]
     Route: 065
  4. LENDORMIN [Concomitant]
     Route: 065
  5. MAGNESIUM OXIDE [Concomitant]
     Route: 065
  6. YOUPATCH [Concomitant]
     Route: 065
  7. PREDONINE [Concomitant]
     Route: 065

REACTIONS (2)
  - ENTEROCOLITIS BACTERIAL [None]
  - WHITE BLOOD CELL COUNT DECREASED [None]
